FAERS Safety Report 11686705 (Version 1)
Quarter: 2015Q4

REPORT INFORMATION
  Report Type: Spontaneous
  Country: None (occurrence: RU)
  Receive Date: 20151030
  Receipt Date: 20151030
  Transmission Date: 20160304
  Serious: Yes (Hospitalization)
  Sender: FDA-Public Use
  Company Number: RU-EAGLE PHARMACEUTICALS, INC.-ELL201510-000212

PATIENT
  Age: 49 Year
  Sex: Female

DRUGS (2)
  1. DICLOFENAC SODIUM AND MISOPROSTOL [Suspect]
     Active Substance: DICLOFENAC SODIUM\MISOPROSTOL
     Route: 030
     Dates: start: 20100504
  2. AKTOVEGIN [Concomitant]
     Route: 030
     Dates: start: 20100504, end: 20100509

REACTIONS (1)
  - Administration site necrosis [Unknown]
